FAERS Safety Report 7049326-6 (Version None)
Quarter: 2010Q4

REPORT INFORMATION
  Report Type: 
  Country: None (occurrence: None)
  Receive Date: 20101018
  Receipt Date: 20100224
  Transmission Date: 20110411
  Serious: No
  Sender: FDA-Public Use
  Company Number: A0847742A

PATIENT
  Sex: Male

DRUGS (2)
  1. CEFTIN [Suspect]
     Route: 065
     Dates: start: 20091203, end: 20091208
  2. OMNARIS [Suspect]
     Dosage: 200UG PER DAY
     Route: 045
     Dates: start: 20091203

REACTIONS (1)
  - NASAL CONGESTION [None]
